FAERS Safety Report 15260362 (Version 2)
Quarter: 2018Q4

REPORT INFORMATION
  Report Type: Report from Study
  Country: US (occurrence: US)
  Receive Date: 20180809
  Receipt Date: 20181019
  Transmission Date: 20190204
  Serious: Yes (Hospitalization, Other)
  Sender: FDA-Public Use
  Company Number: US-JNJFOC-20180810095

PATIENT
  Age: 77 Year
  Sex: Male

DRUGS (13)
  1. MULTIVITAMINS [Concomitant]
     Active Substance: VITAMINS
  2. VITAMIN B-1 [Concomitant]
     Active Substance: THIAMINE HYDROCHLORIDE
     Indication: NAUSEA
     Route: 048
  3. IMBRUVICA [Suspect]
     Active Substance: IBRUTINIB
     Indication: CHRONIC LYMPHOCYTIC LEUKAEMIA
     Route: 048
     Dates: start: 20180421, end: 20180730
  4. VITAMIN B-1 [Concomitant]
     Active Substance: THIAMINE HYDROCHLORIDE
     Indication: VOMITING
     Route: 048
  5. ELIQUIS [Suspect]
     Active Substance: APIXABAN
     Indication: ATRIAL FIBRILLATION
     Route: 065
  6. COMPAZINE [Concomitant]
     Active Substance: PROCHLORPERAZINE MALEATE
     Indication: VOMITING
  7. ZYLOPRIM [Concomitant]
     Active Substance: ALLOPURINOL
     Route: 048
  8. BENTYL [Concomitant]
     Active Substance: DICYCLOMINE HYDROCHLORIDE
  9. COMPAZINE [Concomitant]
     Active Substance: PROCHLORPERAZINE MALEATE
     Indication: NAUSEA
  10. ZINC. [Concomitant]
     Active Substance: ZINC
     Indication: NAUSEA
  11. AMLODIPINE [Suspect]
     Active Substance: AMLODIPINE BESYLATE
     Indication: PRODUCT USED FOR UNKNOWN INDICATION
     Route: 065
     Dates: start: 201806
  12. ZINC. [Concomitant]
     Active Substance: ZINC
     Indication: VOMITING
  13. VITAMIN D3 [Concomitant]
     Active Substance: CHOLECALCIFEROL

REACTIONS (8)
  - Epistaxis [Unknown]
  - Generalised oedema [Recovering/Resolving]
  - Cardiac failure congestive [Unknown]
  - Perirectal abscess [Unknown]
  - Immunoglobulins decreased [Unknown]
  - Atrial fibrillation [Recovered/Resolved]
  - Constipation [Unknown]
  - Fatigue [Unknown]

NARRATIVE: CASE EVENT DATE: 201806
